FAERS Safety Report 4537249-3 (Version None)
Quarter: 2004Q4

REPORT INFORMATION
  Report Type: 
  Country: None (occurrence: None)
  Receive Date: 20041223
  Receipt Date: 20040624
  Transmission Date: 20050328
  Serious: Yes (Life-Threatening, Hospitalization)
  Sender: FDA-Public Use
  Company Number: PHNU2004DE02249

PATIENT
  Sex: Female
  Weight: 86 kg

DRUGS (12)
  1. CLOZARIL [Suspect]
     Indication: SCHIZOPHRENIA
     Dosage: 50 TO 600MG/DAY
     Route: 048
     Dates: start: 19911001, end: 20030901
  2. CLOZARIL [Suspect]
     Dosage: 150MG/DAY
     Route: 048
     Dates: start: 20030901, end: 20040609
  3. SOLIAN [Suspect]
     Dosage: 300MG/DAY
     Route: 048
     Dates: start: 20030901, end: 20040609
  4. BENPERIDOL [Concomitant]
     Route: 065
  5. BIPERIDEN HYDROCHLORIDE TAB [Concomitant]
     Route: 065
  6. PIPAMPERONE [Concomitant]
     Route: 065
  7. TAVOR [Suspect]
     Dosage: 1 TO 2 MG/DAY
     Route: 048
  8. FLUANXOL ^BAYER^ [Concomitant]
     Route: 065
  9. HALDOL [Concomitant]
     Route: 065
  10. RISPERDAL [Concomitant]
     Route: 065
  11. AKINETON /AUS/ [Concomitant]
     Route: 065
  12. LYOGEN [Concomitant]
     Route: 065

REACTIONS (41)
  - ABDOMINAL PAIN [None]
  - ACUTE ABDOMEN [None]
  - ALANINE AMINOTRANSFERASE INCREASED [None]
  - ANAEMIA [None]
  - ASPARTATE AMINOTRANSFERASE INCREASED [None]
  - BIOPSY KIDNEY [None]
  - BLOOD ALKALINE PHOSPHATASE INCREASED [None]
  - BLOOD CHOLESTEROL INCREASED [None]
  - BLOOD CREATININE INCREASED [None]
  - BLOOD GLUCOSE INCREASED [None]
  - BLOOD LACTATE DEHYDROGENASE INCREASED [None]
  - BLOOD PH DECREASED [None]
  - BLOOD TRIGLYCERIDES INCREASED [None]
  - BLOOD UREA INCREASED [None]
  - BODY TEMPERATURE INCREASED [None]
  - C-REACTIVE PROTEIN INCREASED [None]
  - CATHETERISATION VENOUS [None]
  - CHOLESTASIS [None]
  - DIABETES MELLITUS INSULIN-DEPENDENT [None]
  - DIABETIC KETOACIDOSIS [None]
  - DISTURBANCE IN ATTENTION [None]
  - GAMMA-GLUTAMYLTRANSFERASE INCREASED [None]
  - GLOMERULONEPHRITIS ACUTE [None]
  - HAEMATURIA [None]
  - HAEMODIALYSIS [None]
  - HYPERNATRAEMIA [None]
  - HYPERTENSION [None]
  - HYPERURICAEMIA [None]
  - INFECTION [None]
  - KUSSMAUL RESPIRATION [None]
  - LIPASE INCREASED [None]
  - NEPHRITIS INTERSTITIAL [None]
  - OEDEMA [None]
  - OLIGURIA [None]
  - PANCREATITIS ACUTE [None]
  - PERITONITIS [None]
  - PROTEINURIA [None]
  - RENAL FAILURE ACUTE [None]
  - RENAL TUBULAR NECROSIS [None]
  - WEIGHT INCREASED [None]
  - WHITE BLOOD CELL COUNT INCREASED [None]
